FAERS Safety Report 9541430 (Version 1)
Quarter: 2013Q3

REPORT INFORMATION
  Report Type: Spontaneous
  Country: US (occurrence: None)
  Receive Date: 20130919
  Receipt Date: 20130919
  Transmission Date: 20140515
  Serious: Yes (Other)
  Sender: FDA-Public Use
  Company Number: None

PATIENT
  Age: 54 Year
  Sex: Female

DRUGS (1)
  1. RIBAPAK [Suspect]
     Indication: COMA HEPATIC
     Dosage: 400MG BID ORAL
     Route: 048
     Dates: start: 20130708

REACTIONS (2)
  - Rash [None]
  - Pruritus [None]
